FAERS Safety Report 19762086 (Version 1)
Quarter: 2021Q3

REPORT INFORMATION
  Report Type: Spontaneous
  Country: US (occurrence: US)
  Receive Date: 20210830
  Receipt Date: 20210830
  Transmission Date: 20211014
  Serious: Yes (Hospitalization)
  Sender: FDA-Public Use
  Company Number: US-ROCHE-2896835

PATIENT
  Sex: Female

DRUGS (9)
  1. LEFLUNOMIDE. [Concomitant]
     Active Substance: LEFLUNOMIDE
  2. ACTEMRA [Suspect]
     Active Substance: TOCILIZUMAB
     Indication: RHEUMATOID ARTHRITIS
     Route: 058
     Dates: start: 20210702
  3. GABAPENTINE [Concomitant]
     Active Substance: GABAPENTIN
  4. INDOMETHACIN. [Concomitant]
     Active Substance: INDOMETHACIN
  5. BUDESONIDE. [Concomitant]
     Active Substance: BUDESONIDE
  6. DILTIAZEM. [Concomitant]
     Active Substance: DILTIAZEM
  7. FAMOTIDINE. [Concomitant]
     Active Substance: FAMOTIDINE
  8. NYSTATIN;TRIAMCINOLONE [Concomitant]
  9. ELIQUIS [Concomitant]
     Active Substance: APIXABAN

REACTIONS (1)
  - Atrial fibrillation [Unknown]
